FAERS Safety Report 20749365 (Version 1)
Quarter: 2022Q2

REPORT INFORMATION
  Report Type: Spontaneous
  Country: US (occurrence: None)
  Receive Date: 20220425
  Receipt Date: 20220425
  Transmission Date: 20220721
  Serious: No
  Sender: FDA-Public Use
  Company Number: None

PATIENT
  Sex: Female

DRUGS (3)
  1. REVLIMID [Suspect]
     Active Substance: LENALIDOMIDE
     Indication: Plasma cell myeloma
  2. REVLIMID [Suspect]
     Active Substance: LENALIDOMIDE
     Indication: Thyroid cancer
  3. NINLARO [Concomitant]
     Active Substance: IXAZOMIB CITRATE
     Dosage: FREQUENCY : AS DIRECTED;?
     Route: 048
     Dates: start: 202003

REACTIONS (2)
  - Hypersensitivity [None]
  - Swelling [None]
